FAERS Safety Report 21369127 (Version 1)
Quarter: 2022Q3

REPORT INFORMATION
  Report Type: Spontaneous
  Country: GB (occurrence: GB)
  Receive Date: 20220923
  Receipt Date: 20220923
  Transmission Date: 20221027
  Serious: Yes (Disabling, Other)
  Sender: FDA-Public Use
  Company Number: None

PATIENT
  Age: 63 Year
  Sex: Female
  Weight: 112 kg

DRUGS (4)
  1. EMPAGLIFLOZIN [Suspect]
     Active Substance: EMPAGLIFLOZIN
     Indication: Product used for unknown indication
     Dates: start: 20220519
  2. LEVOTHYROXINE [Concomitant]
     Active Substance: LEVOTHYROXINE
     Indication: Hypothyroidism
     Dates: start: 20220407
  3. RAMIPRIL [Concomitant]
     Active Substance: RAMIPRIL
     Indication: Product used for unknown indication
     Dates: start: 20220407
  4. TAMOXIFEN [Concomitant]
     Active Substance: TAMOXIFEN
     Indication: Product used for unknown indication
     Dates: start: 20220304

REACTIONS (10)
  - Dry skin [Recovering/Resolving]
  - Genital candidiasis [Recovered/Resolved]
  - Dry eye [Recovering/Resolving]
  - Throat irritation [Recovered/Resolved]
  - Pharyngeal ulceration [Unknown]
  - Pyrexia [Unknown]
  - Genital blister [Unknown]
  - Genital haemorrhage [Unknown]
  - Mucosal disorder [Unknown]
  - Genital tract inflammation [Unknown]

NARRATIVE: CASE EVENT DATE: 20220601
